FAERS Safety Report 21183530 (Version 1)
Quarter: 2022Q3

REPORT INFORMATION
  Report Type: Spontaneous
  Country: US (occurrence: US)
  Receive Date: 20220808
  Receipt Date: 20220808
  Transmission Date: 20221027
  Serious: No
  Sender: FDA-Public Use
  Company Number: US-BRISTOL-MYERS SQUIBB COMPANY-2022-085034

PATIENT
  Age: 74 Year
  Sex: Female

DRUGS (1)
  1. REVLIMID [Suspect]
     Active Substance: LENALIDOMIDE
     Indication: Product used for unknown indication
     Dosage: 1 DF : 1 CAPSULE?DAYS 1-14 OF A 28 DAY CYCLE
     Route: 048
     Dates: start: 20210504

REACTIONS (1)
  - Circumstance or information capable of leading to medication error [Unknown]
